FAERS Safety Report 12267446 (Version 2)
Quarter: 2016Q2

REPORT INFORMATION
  Report Type: Spontaneous
  Country: US (occurrence: US)
  Receive Date: 20160414
  Receipt Date: 20160517
  Transmission Date: 20160815
  Serious: Yes (Death, Hospitalization, Other)
  Sender: FDA-Public Use
  Company Number: US-ROCHE-1740528

PATIENT
  Sex: Male

DRUGS (2)
  1. ESBRIET [Suspect]
     Active Substance: PIRFENIDONE
     Indication: LUNG DISORDER
     Route: 048
     Dates: start: 20151219, end: 20160501
  2. ESBRIET [Suspect]
     Active Substance: PIRFENIDONE
     Indication: IDIOPATHIC PULMONARY FIBROSIS
     Dosage: 3 PILLS PER MEAL
     Route: 048

REACTIONS (11)
  - Weight decreased [Unknown]
  - Nausea [Unknown]
  - Fatigue [Unknown]
  - Back pain [Unknown]
  - Decreased appetite [Unknown]
  - Dizziness [Unknown]
  - Lung disorder [Fatal]
  - Cardiac flutter [Unknown]
  - Cardiac ablation [Unknown]
  - Pulmonary oedema [Unknown]
  - Abdominal pain upper [Unknown]
